FAERS Safety Report 12713724 (Version 3)
Quarter: 2019Q1

REPORT INFORMATION
  Report Type: Report from Study
  Country: None (occurrence: AR)
  Receive Date: 20160904
  Receipt Date: 20190128
  Transmission Date: 20190417
  Serious: Yes (Other)
  Sender: FDA-Public Use
  Company Number: AR-ABBVIE-16K-007-1717715-00

PATIENT
  Sex: Female

DRUGS (7)
  1. METICORTEN [Concomitant]
     Active Substance: PREDNISONE
     Indication: PRODUCT USED FOR UNKNOWN INDICATION
  2. LEFLUNOMIDA [Concomitant]
     Active Substance: LEFLUNOMIDE
     Indication: PRODUCT USED FOR UNKNOWN INDICATION
  3. DICLOFENAC [Concomitant]
     Active Substance: DICLOFENAC
     Indication: PRODUCT USED FOR UNKNOWN INDICATION
  4. LOSACOR 100 [Concomitant]
     Indication: BLOOD PRESSURE MEASUREMENT
  5. HUMIRA [Suspect]
     Active Substance: ADALIMUMAB
     Indication: RHEUMATOID ARTHRITIS
     Route: 058
     Dates: start: 20151210
  6. TERLOC [Concomitant]
     Indication: PRODUCT USED FOR UNKNOWN INDICATION
  7. T4 MONTPELLIER 75 [Concomitant]
     Indication: THYROID DISORDER

REACTIONS (5)
  - Breast mass [Unknown]
  - Breast operation [Unknown]
  - Neoplasm recurrence [Unknown]
  - Invasive ductal breast carcinoma [Recovering/Resolving]
  - Cyst [Unknown]

NARRATIVE: CASE EVENT DATE: 2016
